FAERS Safety Report 20830894 (Version 3)
Quarter: 2023Q2

REPORT INFORMATION
  Report Type: Report from Study
  Country: US (occurrence: US)
  Receive Date: 20220515
  Receipt Date: 20230614
  Transmission Date: 20230722
  Serious: Yes (Hospitalization)
  Sender: FDA-Public Use
  Company Number: US-JNJFOC-20220521691

PATIENT
  Age: 24 Year
  Sex: Female
  Weight: 62.4 kg

DRUGS (17)
  1. INFLIXIMAB [Suspect]
     Active Substance: INFLIXIMAB
     Indication: Inflammatory bowel disease
     Dosage: LAST ADMINISTRATION PRIOR TO THE EVENT 29-MAR-2022
     Dates: start: 20150111
  2. CALCIUM [Concomitant]
     Active Substance: CALCIUM
  3. CHOLECALCIFEROL [Concomitant]
     Active Substance: CHOLECALCIFEROL
  4. DRONABINOL [Concomitant]
     Active Substance: DRONABINOL
  5. FAMOTIDINE [Concomitant]
     Active Substance: FAMOTIDINE
  6. HYDROXYZINE [Concomitant]
     Active Substance: HYDROXYZINE HYDROCHLORIDE
  7. CAMRESE [Concomitant]
     Active Substance: ETHINYL ESTRADIOL\LEVONORGESTREL
  8. LORAZEPAM [Concomitant]
     Active Substance: LORAZEPAM
  9. ONDANSETRON [Concomitant]
     Active Substance: ONDANSETRON
  10. SUMATRIPTAN [Concomitant]
     Active Substance: SUMATRIPTAN
  11. NAPROXEN [Concomitant]
     Active Substance: NAPROXEN
  12. TOPIRAMATE [Concomitant]
     Active Substance: TOPIRAMATE
  13. ZOLOFT [Concomitant]
     Active Substance: SERTRALINE HYDROCHLORIDE
  14. DOXEPIN [Concomitant]
     Active Substance: DOXEPIN
  15. ATIVAN [Concomitant]
     Active Substance: LORAZEPAM
  16. BACTRIM [Concomitant]
     Active Substance: SULFAMETHOXAZOLE\TRIMETHOPRIM
  17. GABAPENTIN [Concomitant]
     Active Substance: GABAPENTIN

REACTIONS (1)
  - Abdominal pain [Recovered/Resolved]

NARRATIVE: CASE EVENT DATE: 20220401
